FAERS Safety Report 5141304-7 (Version None)
Quarter: 2006Q4

REPORT INFORMATION
  Report Type: 
  Country: None (occurrence: None)
  Receive Date: 20061101
  Receipt Date: 20060302
  Transmission Date: 20070319
  Serious: Yes (Hospitalization)
  Sender: FDA-Public Use
  Company Number: US-ROCHE-439581

PATIENT
  Age: 54 Year
  Sex: Female

DRUGS (2)
  1. PEGASYS [Suspect]
     Dosage: ROUTE REPORTED AS INJ.
     Route: 050
     Dates: start: 20051021
  2. COPEGUS [Suspect]
     Dosage: DOSING FREQUENCY REPORTED AS 3 TABS IN IN THE MORNING, 3 TABS IN THE EVENING.
     Route: 048
     Dates: start: 20051021

REACTIONS (17)
  - ANAEMIA [None]
  - CHILLS [None]
  - CONTUSION [None]
  - COUGH [None]
  - DEPRESSION [None]
  - FALL [None]
  - FEELING HOT AND COLD [None]
  - HAEMORRHOIDS [None]
  - HYPERSENSITIVITY [None]
  - HYPOTHYROIDISM [None]
  - JOINT INJURY [None]
  - LOCALISED INFECTION [None]
  - NEPHROLITHIASIS [None]
  - PAIN [None]
  - PYREXIA [None]
  - STOMATITIS [None]
  - WHITE BLOOD CELL COUNT DECREASED [None]
